FAERS Safety Report 8617525 (Version 2)
Quarter: 2013Q2

REPORT INFORMATION
  Report Type: Report from Study
  Country: BE (occurrence: BE)
  Receive Date: 20120615
  Receipt Date: 20130507
  Transmission Date: 20140414
  Serious: Yes (Death, Life-Threatening, Hospitalization)
  Sender: FDA-Public Use
  Company Number: BE-ROCHE-1077397

PATIENT
  Age: 59 Year
  Sex: Male
  Weight: 71 kg

DRUGS (5)
  1. BEVACIZUMAB [Suspect]
     Indication: METASTATIC RENAL CELL CARCINOMA
     Route: 042
     Dates: start: 20090811
  2. BEVACIZUMAB [Suspect]
     Route: 042
     Dates: start: 20091007, end: 20091019
  3. EVEROLIMUS [Suspect]
     Indication: METASTATIC RENAL CELL CARCINOMA
     Route: 048
     Dates: start: 20090811
  4. EVEROLIMUS [Suspect]
     Route: 048
     Dates: start: 20091007, end: 20091018
  5. CLEXANE [Concomitant]

REACTIONS (8)
  - Obstructive airways disorder [Fatal]
  - Cardiac failure [Fatal]
  - Decreased appetite [Recovered/Resolved]
  - Performance status decreased [Unknown]
  - Vomiting [Recovered/Resolved]
  - Nausea [Recovered/Resolved]
  - Abdominal pain [Recovered/Resolved]
  - Stomatitis [Unknown]
